FAERS Safety Report 12216186 (Version 1)
Quarter: 2016Q1

REPORT INFORMATION
  Report Type: Not Available
  Country: FR (occurrence: FR)
  Receive Date: 20160329
  Receipt Date: 20160329
  Transmission Date: 20160526
  Serious: Yes (Life-Threatening)
  Sender: FDA-Public Use
  Company Number: FR-BEH-2016059711

PATIENT
  Age: 36 Year
  Sex: Male

DRUGS (14)
  1. OROCAL [Concomitant]
     Active Substance: CALCIUM CARBONATE
  2. LASILIX [Concomitant]
     Active Substance: FUROSEMIDE
  3. RENVELA [Concomitant]
     Active Substance: SEVELAMER CARBONATE
  4. CORTANCYL [Concomitant]
     Active Substance: PREDNISONE
  5. ROVALCYTE [Concomitant]
     Active Substance: VALGANCICLOVIR HYDROCHLORIDE
  6. KAYEXALATE [Concomitant]
     Active Substance: SODIUM POLYSTYRENE SULFONATE
  7. SPECIAFOLDINE [Concomitant]
     Active Substance: FOLIC ACID
  8. MYCOSTATIN [Concomitant]
     Active Substance: NYSTATIN
  9. PRIVIGEN [Suspect]
     Active Substance: HUMAN IMMUNOGLOBULIN G
     Indication: PROPHYLAXIS AGAINST TRANSPLANT REJECTION
     Dosage: POSOLOGY: 40 G
     Route: 042
     Dates: start: 20160203, end: 20160203
  10. CELLCEPT [Concomitant]
     Active Substance: MYCOPHENOLATE MOFETIL\MYCOPHENOLATE MOFETIL HYDROCHLORIDE
  11. EUPRESSYL [Concomitant]
     Active Substance: URAPIDIL
  12. BACTRIM FORT [Concomitant]
     Active Substance: SULFAMETHOXAZOLE\TRIMETHOPRIM
  13. AMLOR [Concomitant]
     Active Substance: AMLODIPINE BESYLATE
  14. PROGRAF [Concomitant]
     Active Substance: TACROLIMUS\TACROLIMUS ANHYDROUS

REACTIONS (5)
  - Anuria [Recovered/Resolved]
  - Blood creatinine increased [Recovered/Resolved]
  - Acute kidney injury [Recovered/Resolved]
  - Renal tubular necrosis [Recovered/Resolved]
  - Oliguria [Recovered/Resolved]

NARRATIVE: CASE EVENT DATE: 201602
